FAERS Safety Report 4617257-4 (Version None)
Quarter: 2005Q1

REPORT INFORMATION
  Report Type: 
  Country: None (occurrence: None)
  Receive Date: 20050318
  Receipt Date: 20050302
  Transmission Date: 20050727
  Serious: Yes (Death)
  Sender: FDA-Public Use
  Company Number: L04-USA-07403-11

PATIENT
  Age: 30 Year
  Sex: Male

DRUGS (4)
  1. CITALOPRAM HYDROBROMIDE [Suspect]
  2. OXYCODONE HCL [Suspect]
  3. ALPRAZOLAM [Suspect]
  4. CLONAZEPAM [Suspect]

REACTIONS (3)
  - CARDIO-RESPIRATORY ARREST [None]
  - INTENTIONAL MISUSE [None]
  - SUICIDE ATTEMPT [None]
